FAERS Safety Report 20722507 (Version 1)
Quarter: 2022Q2

REPORT INFORMATION
  Report Type: Report from Study
  Country: US (occurrence: US)
  Receive Date: 20220418
  Receipt Date: 20220418
  Transmission Date: 20220721
  Serious: Yes (Other)
  Sender: FDA-Public Use
  Company Number: US-CELGENE-USA-20220301506

PATIENT
  Age: 75 Year
  Sex: Female
  Weight: 81.64 kg

DRUGS (2)
  1. REVLIMID [Suspect]
     Active Substance: LENALIDOMIDE
     Indication: Plasma cell myeloma
     Dosage: 25 MILLIGRAM
     Route: 048
     Dates: start: 20220218
  2. REVLIMID [Suspect]
     Active Substance: LENALIDOMIDE
     Dosage: FREQUENCY: DAILY 14 DAYS
     Route: 048
     Dates: start: 20220218

REACTIONS (5)
  - Lower limb fracture [Unknown]
  - Rash [Recovered/Resolved]
  - Fatigue [Unknown]
  - Upper limb fracture [Unknown]
  - Dysgraphia [Unknown]

NARRATIVE: CASE EVENT DATE: 20220101
